FAERS Safety Report 18533144 (Version 1)
Quarter: 2020Q4

REPORT INFORMATION
  Report Type: Spontaneous
  Country: US (occurrence: US)
  Receive Date: 20201120
  Receipt Date: 20201120
  Transmission Date: 20210114
  Serious: Yes (Other)
  Sender: FDA-Public Use
  Company Number: None

PATIENT
  Age: 26 Year

DRUGS (2)
  1. OXYBUTYNIN 1MG [Suspect]
     Active Substance: OXYBUTYNIN CHLORIDE
  2. GLYCOPYRROLATE 1MG [Suspect]
     Active Substance: GLYCOPYRROLATE

REACTIONS (1)
  - Treatment failure [None]

NARRATIVE: CASE EVENT DATE: 20201120
